FAERS Safety Report 4408699-0 (Version None)
Quarter: 2004Q3

REPORT INFORMATION
  Report Type: 
  Country: None (occurrence: None)
  Receive Date: 20040722
  Receipt Date: 20040714
  Transmission Date: 20050211
  Serious: Yes (Death)
  Sender: FDA-Public Use
  Company Number: S04-USA-01559-01

PATIENT
  Age: 60 Year
  Sex: Male
  Weight: 79.3795 kg

DRUGS (1)
  1. CELEXA [Suspect]
     Indication: DEPRESSION
     Dates: start: 20020507

REACTIONS (10)
  - ATHEROSCLEROSIS [None]
  - CARDIOMEGALY [None]
  - COMPLETED SUICIDE [None]
  - CORONARY ARTERY STENOSIS [None]
  - HEPATIC CONGESTION [None]
  - INJURY ASPHYXIATION [None]
  - NEPHROSCLEROSIS [None]
  - PULMONARY CONGESTION [None]
  - SCAR [None]
  - VENTRICULAR HYPERTROPHY [None]
